FAERS Safety Report 20882078 (Version 1)
Quarter: 2022Q2

REPORT INFORMATION
  Report Type: Report from Study
  Country: RU (occurrence: RU)
  Receive Date: 20220527
  Receipt Date: 20220527
  Transmission Date: 20220720
  Serious: Yes (Other)
  Sender: FDA-Public Use
  Company Number: RU-SUN PHARMACEUTICAL INDUSTRIES LTD-2022R1-338156

PATIENT
  Age: 16 Month
  Sex: Male

DRUGS (2)
  1. AZITHROMYCIN [Suspect]
     Active Substance: AZITHROMYCIN
     Indication: Lymphoproliferative disorder
     Dosage: UNK
     Route: 065
  2. FLUCONAZOLE [Suspect]
     Active Substance: FLUCONAZOLE
     Indication: Lymphoproliferative disorder
     Dosage: UNK
     Route: 065

REACTIONS (1)
  - Condition aggravated [Unknown]
